FAERS Safety Report 4866951-9 (Version None)
Quarter: 2005Q4

REPORT INFORMATION
  Report Type: 
  Country: None (occurrence: None)
  Receive Date: 20051227
  Receipt Date: 20051005
  Transmission Date: 20060501
  Serious: Yes (Death, Other)
  Sender: FDA-Public Use
  Company Number: US-MERCK-0510USA04699

PATIENT
  Age: 58 Year
  Sex: Male
  Weight: 105 kg

DRUGS (6)
  1. VIOXX [Suspect]
     Indication: RHEUMATOID ARTHRITIS
     Route: 048
     Dates: start: 20000101, end: 20020101
  2. CELEBREX [Concomitant]
     Route: 048
  3. COREG [Concomitant]
     Route: 048
  4. PRILOSEC [Concomitant]
     Route: 048
  5. TYLENOL [Concomitant]
     Route: 048
  6. DIURETIC (UNSPECIFIED) [Concomitant]
     Route: 048

REACTIONS (6)
  - CARDIAC DISORDER [None]
  - DEATH [None]
  - EMPHYSEMA [None]
  - GASTROOESOPHAGEAL REFLUX DISEASE [None]
  - HYPOXIA [None]
  - MYOCARDIAL INFARCTION [None]
